FAERS Safety Report 11054719 (Version 1)
Quarter: 2015Q2

REPORT INFORMATION
  Report Type: Spontaneous
  Country: US (occurrence: US)
  Receive Date: 20150422
  Receipt Date: 20150422
  Transmission Date: 20150821
  Serious: Yes (Other)
  Sender: FDA-Public Use
  Company Number: US-ASTRAZENECA-2014SE29197

PATIENT
  Age: 28031 Day
  Sex: Male
  Weight: 91.2 kg

DRUGS (32)
  1. ZOLOFT [Concomitant]
     Active Substance: SERTRALINE HYDROCHLORIDE
     Dates: start: 20060603
  2. CRESTOR [Concomitant]
     Active Substance: ROSUVASTATIN CALCIUM
     Dates: start: 20070820
  3. DULERA [Concomitant]
     Active Substance: FORMOTEROL FUMARATE DIHYDRATE\MOMETASONE FUROATE
     Dosage: TWICE DAILY
     Dates: start: 20120521
  4. VALSARTAN/ HYDROCHLOROTHIAZIDE [Concomitant]
     Dosage: 0/12.5 DAILY
     Dates: start: 20120521
  5. GARLIC. [Concomitant]
     Active Substance: GARLIC
     Dosage: 2 TABLETS ONCE DAILY
     Dates: start: 20050928
  6. TEKTURNA [Concomitant]
     Active Substance: ALISKIREN HEMIFUMARATE
     Dates: start: 20090522
  7. PREDNISONE. [Concomitant]
     Active Substance: PREDNISONE
     Dates: start: 20101002
  8. ALBUTEROL. [Concomitant]
     Active Substance: ALBUTEROL
  9. METFORMIN [Concomitant]
     Active Substance: METFORMIN HYDROCHLORIDE
     Dates: start: 20050928
  10. DIPHENHYDRAMINE [Concomitant]
     Active Substance: DIPHENHYDRAMINE
     Dosage: 50 MG
     Dates: start: 20101002
  11. ECOTRIN [Concomitant]
     Active Substance: ASPIRIN
  12. PLAVIX/ CLOPIDOGREL [Concomitant]
     Dates: start: 20080318
  13. NORVASC/ AMLODIPINE [Concomitant]
     Dates: start: 20070731
  14. NITROGLYCERIN/ NITROSTAT [Concomitant]
     Dosage: 0.4 MG
     Dates: start: 20080318
  15. VYTORIN [Concomitant]
     Active Substance: EZETIMIBE\SIMVASTATIN
     Dosage: 10 MG
     Dates: start: 20080308
  16. SINGULAIR [Concomitant]
     Active Substance: MONTELUKAST SODIUM
     Dosage: 10 MG
     Dates: start: 20110524
  17. CEFUROXIME AXETIL. [Concomitant]
     Active Substance: CEFUROXIME AXETIL
     Dates: start: 20121229
  18. BYETTA [Suspect]
     Active Substance: EXENATIDE
     Route: 065
     Dates: start: 20061031
  19. ATENOLOL. [Concomitant]
     Active Substance: ATENOLOL
     Dates: start: 20070306
  20. CLARITIN [Concomitant]
     Active Substance: LORATADINE
     Dosage: DAILY
     Dates: start: 20120521
  21. NASONEX [Concomitant]
     Active Substance: MOMETASONE FUROATE
     Dosage: DAILY P.R.N.
     Dates: start: 20120521
  22. VITAMIN C [Concomitant]
     Active Substance: ASCORBIC ACID
     Dates: start: 20050928
  23. FLONASE [Concomitant]
     Active Substance: FLUTICASONE PROPIONATE
     Dosage: 0.05 MG/INH 2 SPRAY(S) ONCE DAILY.
     Dates: start: 20050928
  24. ACTOS [Concomitant]
     Active Substance: PIOGLITAZONE HYDROCHLORIDE
     Dates: start: 20070918
  25. BYETTA [Suspect]
     Active Substance: EXENATIDE
     Dosage: 10 MICROGRAMS
     Route: 065
     Dates: start: 20070102
  26. LANTUS [Concomitant]
     Active Substance: INSULIN GLARGINE
     Dosage: 26 UNITS TWICE A DAY
     Dates: start: 20120521
  27. LISINOPRIL-HCTZ [Concomitant]
     Active Substance: HYDROCHLOROTHIAZIDE\LISINOPRIL
     Dosage: 20-12.5 MG
     Dates: start: 20060708
  28. LEVOTHYROXINE [Concomitant]
     Active Substance: LEVOTHYROXINE
     Dates: start: 20120521
  29. CALCIUM CARBONATE. [Concomitant]
     Active Substance: CALCIUM CARBONATE
     Dates: start: 20050928
  30. BYETTA [Suspect]
     Active Substance: EXENATIDE
     Dosage: UNK
     Route: 065
     Dates: start: 200610, end: 200702
  31. GLYBURIDE. [Concomitant]
     Active Substance: GLYBURIDE
     Dates: start: 20050928
  32. SULAR [Concomitant]
     Active Substance: NISOLDIPINE
     Dates: start: 20060214

REACTIONS (1)
  - Pancreatic carcinoma [Unknown]

NARRATIVE: CASE EVENT DATE: 20120424
